FAERS Safety Report 9200549 (Version 3)
Quarter: 2013Q4

REPORT INFORMATION
  Report Type: Spontaneous
  Country: GB (occurrence: GB)
  Receive Date: 20130329
  Receipt Date: 20131002
  Transmission Date: 20140711
  Serious: Yes (Death)
  Sender: FDA-Public Use
  Company Number: GB-PFIZER INC-HQWYE370902AUG07

PATIENT
  Sex: 0

DRUGS (1)
  1. IBUPROFEN [Suspect]
     Dosage: GREATER THAT 20 GRAMS
     Route: 065

REACTIONS (2)
  - Overdose [Fatal]
  - Sepsis [Fatal]
